FAERS Safety Report 7563273-2 (Version None)
Quarter: 2011Q2

REPORT INFORMATION
  Report Type: 
  Country: None (occurrence: None)
  Receive Date: 20110621
  Receipt Date: 20110621
  Transmission Date: 20111010
  Serious: Yes (Hospitalization)
  Sender: FDA-Public Use
  Company Number: None

PATIENT
  Age: 81 Year
  Sex: Male

DRUGS (7)
  1. VITAMIN D [Concomitant]
  2. CELEBREX [Concomitant]
  3. DIOVAN [Suspect]
     Indication: HYPERTENSION
  4. VITAMIN D2 [Concomitant]
  5. LEVOTHYROXINE SODIUM [Concomitant]
  6. DONEPEZIL HCL [Concomitant]
  7. AMLODIPINE BESYLATE [Concomitant]

REACTIONS (1)
  - ANGIOEDEMA [None]
